FAERS Safety Report 8991187 (Version 1)
Quarter: 2012Q4

REPORT INFORMATION
  Report Type: Spontaneous
  Country: US (occurrence: None)
  Receive Date: 20121227
  Receipt Date: 20121227
  Transmission Date: 20130627
  Serious: Yes (Hospitalization, Other)
  Sender: FDA-Public Use
  Company Number: None

PATIENT
  Age: 31 Year
  Sex: Male
  Weight: 74.84 kg

DRUGS (1)
  1. LUNESTA [Suspect]
     Indication: INSOMNIA
     Dosage: 3MG 1 NIGHTLY PO
     Route: 048
     Dates: start: 20080101, end: 20121224

REACTIONS (4)
  - Verbal abuse [None]
  - Surgery [None]
  - Injury [None]
  - Restlessness [None]
